FAERS Safety Report 22110303 (Version 1)
Quarter: 2023Q1

REPORT INFORMATION
  Report Type: Spontaneous
  Country: US (occurrence: US)
  Receive Date: 20230317
  Receipt Date: 20230317
  Transmission Date: 20230417
  Serious: No
  Sender: FDA-Public Use
  Company Number: US-SPECGX-T202202258

PATIENT

DRUGS (1)
  1. DEXTROAMPHETAMINE SULFATE [Suspect]
     Active Substance: DEXTROAMPHETAMINE SULFATE
     Indication: Product used for unknown indication
     Dosage: 2.5 MILLIGRAM (HALF OF A PILL)
     Route: 065

REACTIONS (4)
  - Heart rate increased [Unknown]
  - Palpitations [Unknown]
  - Product physical issue [Unknown]
  - Extra dose administered [Unknown]
